FAERS Safety Report 8015631-X (Version None)
Quarter: 2011Q4

REPORT INFORMATION
  Report Type: 
  Country: None (occurrence: None)
  Receive Date: 20111230
  Receipt Date: 20111222
  Transmission Date: 20120403
  Serious: Yes (Hospitalization)
  Sender: FDA-Public Use
  Company Number: FR-MILLENNIUM PHARMACEUTICALS, INC.-2011-05056

PATIENT

DRUGS (7)
  1. VELCADE [Suspect]
     Indication: MULTIPLE MYELOMA
     Dosage: 2.66 MG, UNK
     Route: 065
     Dates: start: 20111004, end: 20111014
  2. BACTRIM [Suspect]
     Indication: PROPHYLAXIS
     Dosage: UNK
     Route: 048
     Dates: start: 20111004
  3. ZELITREX                           /01269701/ [Concomitant]
     Dosage: 8 G, UNK
     Route: 048
     Dates: start: 20111004
  4. DEXAMETHASONE [Suspect]
     Indication: MULTIPLE MYELOMA
     Dosage: 20 MG, UNK
     Route: 065
     Dates: start: 20111004, end: 20111015
  5. AMOXICILLIN TRIHYDRATE [Suspect]
     Dosage: 4 G, UNK
     Route: 048
     Dates: start: 20111004
  6. REVLIMID [Suspect]
     Indication: MULTIPLE MYELOMA
     Dosage: 25 MG, UNK
     Route: 065
     Dates: start: 20111004, end: 20111017
  7. LOVENOX [Concomitant]
     Dosage: 40 MG/M2, UNK
     Route: 058
     Dates: start: 20111004

REACTIONS (2)
  - THROMBOCYTOPENIA [None]
  - DERMATITIS EXFOLIATIVE [None]
